FAERS Safety Report 9927249 (Version 3)
Quarter: 2014Q2

REPORT INFORMATION
  Report Type: Spontaneous
  Country: US (occurrence: US)
  Receive Date: 20140226
  Receipt Date: 20140404
  Transmission Date: 20141212
  Serious: Yes (Other)
  Sender: FDA-Public Use
  Company Number: US-AMGEN-USASP2014012654

PATIENT
  Age: 60 Year
  Sex: Female
  Weight: 83.45 kg

DRUGS (1)
  1. NPLATE [Suspect]
     Indication: IMMUNE THROMBOCYTOPENIC PURPURA
     Dosage: 80 MUG, UNK
     Route: 058
     Dates: start: 20130513

REACTIONS (2)
  - Therapeutic response decreased [Unknown]
  - Platelet count decreased [Recovering/Resolving]
